FAERS Safety Report 23575808 (Version 1)
Quarter: 2024Q1

REPORT INFORMATION
  Report Type: Spontaneous
  Country: NL (occurrence: NL)
  Receive Date: 20240228
  Receipt Date: 20240228
  Transmission Date: 20240410
  Serious: Yes (Other)
  Sender: FDA-Public Use
  Company Number: None

PATIENT
  Age: 0 Year

DRUGS (1)
  1. BETAMETHASONE [Suspect]
     Active Substance: BETAMETHASONE\BETAMETHASONE DIPROPIONATE
     Indication: Eczema
     Dosage: 4 X PER WEEK,  BRAND NAME NOT SPECIFIED
     Route: 065
     Dates: start: 20030101, end: 20231123

REACTIONS (2)
  - Renal cyst [Not Recovered/Not Resolved]
  - Maternal exposure during pregnancy [Unknown]
